FAERS Safety Report 16382074 (Version 1)
Quarter: 2019Q2

REPORT INFORMATION
  Report Type: Spontaneous
  Country: US (occurrence: US)
  Receive Date: 20190425
  Receipt Date: 20190425
  Transmission Date: 20190711
  Serious: Yes (Hospitalization)
  Sender: FDA-Public Use
  Company Number: None

PATIENT
  Age: 69 Year
  Sex: Male
  Weight: 138.7 kg

DRUGS (4)
  1. CYTARABINE. [Suspect]
     Active Substance: CYTARABINE
     Dates: end: 20190408
  2. DAUNORUBICIN [Suspect]
     Active Substance: DAUNORUBICIN
     Dosage: ?          OTHER DOSE:25 UNIT;?
     Dates: end: 20190417
  3. DEXAMETHASONE. [Suspect]
     Active Substance: DEXAMETHASONE
     Dosage: ?          OTHER DOSE:10 UNIT;?
     Dates: end: 20190417
  4. VINCRISTINE SULFATE. [Suspect]
     Active Substance: VINCRISTINE SULFATE
     Dosage: ?          OTHER DOSE:1.4 UNIT;?
     Dates: end: 20190417

REACTIONS (8)
  - Influenza like illness [None]
  - Fall [None]
  - Influenza A virus test positive [None]
  - Pathogen resistance [None]
  - Cytopenia [None]
  - Enterococcal bacteraemia [None]
  - Transfusion [None]
  - Enterococcal infection [None]

NARRATIVE: CASE EVENT DATE: 20190418
